FAERS Safety Report 17926330 (Version 1)
Quarter: 2020Q2

REPORT INFORMATION
  Report Type: Other
  Country: US (occurrence: US)
  Receive Date: 20200622
  Receipt Date: 20200622
  Transmission Date: 20200714
  Serious: Yes (Other)
  Sender: FDA-Public Use
  Company Number: US-B.BRAUN MEDICAL INC.-2086501

PATIENT
  Age: 78 Year
  Sex: Male

DRUGS (17)
  1. ALLOPURINOL (ALLOPURINOL) [Concomitant]
     Active Substance: ALLOPURINOL
  2. FERROUS SULFATE. [Concomitant]
     Active Substance: FERROUS SULFATE
  3. CRESTOR [Concomitant]
     Active Substance: ROSUVASTATIN CALCIUM
  4. SPIRONOLACTONE (SPIRONOLACTONE) 04/03/2020 TO 04/--/2020??SPIRONOLACTO [Concomitant]
  5. POTASSIUM CHLORIDE FOR INJECTION CONCENTRATE USP 0264-1940-20 (ANDA 08 [Suspect]
     Active Substance: POTASSIUM CHLORIDE
     Indication: HYPOKALAEMIA
     Route: 048
     Dates: start: 20200317, end: 20200331
  6. KORLYM [Suspect]
     Active Substance: MIFEPRISTONE
     Route: 048
  7. METOPROLOL /00376902/ (METOPROLOL TARTRATE) [Concomitant]
  8. LEVOTHYROXINE (LEVOTHYROXINE) [Concomitant]
     Active Substance: LEVOTHYROXINE
  9. LANSOPRAZOLE (LANSOPRAZOLE) [Concomitant]
     Active Substance: LANSOPRAZOLE
  10. LISINOPRIL (LISINOPRIL) UNK TO 04/01/2020 [Concomitant]
  11. TORSEMIDE (TORASEMIDE) UNK TO 04/03/2020 [Concomitant]
  12. ASPIRIN (ACETYLSALICYLIC ACID) [Concomitant]
     Active Substance: ASPIRIN
  13. GLIMEPIRIDE (GLIMEPIRIDE) [Concomitant]
     Active Substance: GLIMEPIRIDE
  14. METFORMIN [Concomitant]
     Active Substance: METFORMIN HYDROCHLORIDE
  15. BRILINTA [Concomitant]
     Active Substance: TICAGRELOR
  16. NITROGLYCERIN (GLYCERYL TRINITRATE) [Concomitant]
     Active Substance: NITROGLYCERIN
  17. NIZATIDINE (NIZATIDINE) [Concomitant]

REACTIONS (2)
  - Vomiting [Recovered/Resolved]
  - Diarrhoea [Recovered/Resolved]

NARRATIVE: CASE EVENT DATE: 20200422
